FAERS Safety Report 10957127 (Version 1)
Quarter: 2015Q1

REPORT INFORMATION
  Report Type: Spontaneous
  Country: US (occurrence: US)
  Receive Date: 20150326
  Receipt Date: 20150326
  Transmission Date: 20150721
  Serious: No
  Sender: FDA-Public Use
  Company Number: US-PFIZER INC-2015103039

PATIENT
  Age: 15 Year
  Sex: Male
  Weight: 50 kg

DRUGS (3)
  1. ALBUTEROL SULFATE. [Concomitant]
     Active Substance: ALBUTEROL SULFATE
     Dosage: 5 MG/ML
  2. GENOTROPIN [Suspect]
     Active Substance: SOMATROPIN
     Indication: HYPOPITUITARISM
     Dosage: 2.2 MG, 6 DAYS/WEEK
     Route: 058
  3. GENOTROPIN [Suspect]
     Active Substance: SOMATROPIN
     Indication: DWARFISM
     Dosage: 1.8 MG, 6 DAYS/WEEK
     Route: 058

REACTIONS (1)
  - Blood growth hormone increased [Unknown]

NARRATIVE: CASE EVENT DATE: 201502
